FAERS Safety Report 23451230 (Version 2)
Quarter: 2024Q1

REPORT INFORMATION
  Report Type: Report from Study
  Country: US (occurrence: US)
  Receive Date: 20240129
  Receipt Date: 20240213
  Transmission Date: 20240410
  Serious: No
  Sender: FDA-Public Use
  Company Number: US-AGIOS-2401US03616

PATIENT
  Sex: Female

DRUGS (1)
  1. MITAPIVAT [Suspect]
     Active Substance: MITAPIVAT
     Indication: Pyruvate kinase deficiency anaemia
     Dosage: 20 MILLIGRAM, BID
     Route: 048
     Dates: start: 20230920

REACTIONS (9)
  - Blood creatinine abnormal [Unknown]
  - Chest pain [Unknown]
  - Dyspnoea [Unknown]
  - Haemoglobin decreased [Unknown]
  - Malaise [Unknown]
  - Product dose omission in error [Unknown]
  - Anaemia [Unknown]
  - Fatigue [Unknown]
  - Product use issue [Unknown]
